FAERS Safety Report 22320355 (Version 2)
Quarter: 2023Q2

REPORT INFORMATION
  Report Type: Report from Study
  Country: US (occurrence: US)
  Receive Date: 20230515
  Receipt Date: 20230602
  Transmission Date: 20230722
  Serious: Yes (Death, Hospitalization, Disabling, Other)
  Sender: FDA-Public Use
  Company Number: US-ALNYLAM PHARMACEUTICALS, INC.-ALN-2023-001247

PATIENT

DRUGS (67)
  1. ONPATTRO [Suspect]
     Active Substance: PATISIRAN SODIUM
     Indication: Cardiac amyloidosis
     Dosage: 21.94 MILLIGRAM, Q3W
     Route: 042
     Dates: start: 20221213
  2. ONPATTRO [Suspect]
     Active Substance: PATISIRAN SODIUM
     Dosage: 22.8 MILLIGRAM, Q3W
     Route: 042
     Dates: start: 20230126
  3. ONPATTRO [Suspect]
     Active Substance: PATISIRAN SODIUM
     Dosage: 22.96 MILLIGRAM, Q3W
     Route: 042
     Dates: start: 20230217
  4. DEXTROSE [Concomitant]
     Active Substance: DEXTROSE\DEXTROSE MONOHYDRATE
     Indication: Hypoglycaemia
     Dosage: UNK
     Route: 065
     Dates: start: 20230311, end: 20230318
  5. LASIX [Concomitant]
     Active Substance: FUROSEMIDE
     Indication: Hypervolaemia
     Dosage: 80 MILLIGRAM
     Route: 042
     Dates: start: 20230311, end: 20230311
  6. LASIX [Concomitant]
     Active Substance: FUROSEMIDE
     Indication: Oedema peripheral
  7. AZITHROMYCIN [Concomitant]
     Active Substance: AZITHROMYCIN
     Indication: Infection
     Dosage: UNK
     Route: 065
  8. CEFEPIME [Concomitant]
     Active Substance: CEFEPIME HYDROCHLORIDE
     Indication: Infection
     Dosage: UNK
     Route: 065
     Dates: start: 20230311, end: 20230312
  9. ACETAMINOPHEN [Concomitant]
     Active Substance: ACETAMINOPHEN
     Indication: Pain
     Dosage: 500 MILLIGRAM, PRN (THREE TABS EVERY SIX HOURS AS NEEDED)
     Route: 048
  10. ACETAMINOPHEN [Concomitant]
     Active Substance: ACETAMINOPHEN
     Dosage: 650 MILLIGRAM, PRN (TWO TABLETS EVERY 12 HOURS AS NEEDED)
     Route: 048
     Dates: start: 20230313, end: 20230319
  11. ATORVASTATIN [Concomitant]
     Active Substance: ATORVASTATIN
     Indication: Hypercholesterolaemia
     Dosage: 20 MILLIGRAM, QD
     Route: 048
     Dates: start: 20230302, end: 20230313
  12. CALCIUM CARBONATE [Concomitant]
     Active Substance: CALCIUM CARBONATE
     Indication: Supplementation therapy
     Dosage: 600 MILLIGRAM, QD
     Route: 048
  13. CEFDINIR [Concomitant]
     Active Substance: CEFDINIR
     Indication: Bronchitis
     Dosage: 300 MILLIGRAM, QD
     Route: 048
  14. CEFDINIR [Concomitant]
     Active Substance: CEFDINIR
     Dosage: 300 MILLIGRAM, BID
     Route: 065
     Dates: start: 20230303, end: 20230311
  15. FEXOFENADINE [Concomitant]
     Active Substance: FEXOFENADINE HYDROCHLORIDE
     Indication: Hypersensitivity
     Dosage: 180 MILLIGRAM, QD
     Route: 048
     Dates: start: 20220303, end: 20230313
  16. FLUTICASONE [Concomitant]
     Active Substance: FLUTICASONE
     Indication: Hypersensitivity
     Dosage: 50 MICROGRAM, SPRAY IN EACH NARE QD
     Route: 045
  17. FLUTICASONE [Concomitant]
     Active Substance: FLUTICASONE
     Dosage: 50 MICROGRAM, SPRAY IN EACH NARE QD
     Route: 045
     Dates: start: 20230313, end: 20230319
  18. FOLIC ACID [Concomitant]
     Active Substance: FOLIC ACID
     Indication: Rheumatoid arthritis
     Dosage: 1 MILLIGRAM, QD
     Route: 048
     Dates: start: 20220824, end: 20230313
  19. FUROSEMIDE [Concomitant]
     Active Substance: FUROSEMIDE
     Indication: Cardiac failure
     Dosage: 20 MILLIGRAM, BID
     Route: 048
     Dates: start: 20221104, end: 20230313
  20. HYDROXYCHLOROQUINE [Concomitant]
     Active Substance: HYDROXYCHLOROQUINE
     Indication: Rheumatoid arthritis
     Dosage: 200 MILLIGRAM, BID
     Route: 048
     Dates: start: 20220714, end: 20230313
  21. METHOTREXATE [Concomitant]
     Active Substance: METHOTREXATE
     Indication: Rheumatoid arthritis
     Dosage: 2.5 MILLIGRAM, WEEKLY
     Route: 048
     Dates: start: 20221116, end: 20230313
  22. VITAMINS [Concomitant]
     Active Substance: VITAMINS
     Indication: Supplementation therapy
     Dosage: 1 DOSAGE FORM, QD
     Route: 048
  23. NAPROXEN [Concomitant]
     Active Substance: NAPROXEN
     Indication: Arthralgia
     Dosage: 500 MILLIGRAM, BID
     Route: 048
     Dates: start: 20220908, end: 20230313
  24. OMEPRAZOLE [Concomitant]
     Active Substance: OMEPRAZOLE
     Indication: Product used for unknown indication
     Dosage: 20 MILLIGRAM, QD
     Route: 048
  25. REMICADE [Concomitant]
     Active Substance: INFLIXIMAB
     Indication: Rheumatoid arthritis
     Dosage: 5 MILLIGRAM/KILOGRAM, EVERY 8 WEEKS
     Route: 042
  26. TAMSULOSIN [Concomitant]
     Active Substance: TAMSULOSIN
     Indication: Benign prostatic hyperplasia
     Dosage: 0.4 MILLIGRAM, QD
     Route: 048
     Dates: start: 20220302, end: 20230313
  27. VITAMIN C [Concomitant]
     Active Substance: ASCORBIC ACID
     Indication: Supplementation therapy
     Dosage: 1 DOSAGE FORM, QD
     Route: 048
  28. VYNDAMAX [Concomitant]
     Active Substance: TAFAMIDIS
     Indication: Cardiac amyloidosis
     Dosage: 61 MILLIGRAM, QD
     Route: 048
  29. DEXTROSE [Concomitant]
     Active Substance: DEXTROSE\DEXTROSE MONOHYDRATE
     Indication: Atrial fibrillation
     Dosage: 250 MILLILITER, SINGLE
     Route: 065
     Dates: start: 20230313, end: 20230319
  30. DEXTROSE [Concomitant]
     Active Substance: DEXTROSE\DEXTROSE MONOHYDRATE
     Indication: Hypoglycaemia
     Dosage: 1000 MILLILITER
     Route: 065
     Dates: start: 20230313, end: 20230319
  31. AMIODARONE [Concomitant]
     Active Substance: AMIODARONE
     Indication: Atrial fibrillation
     Dosage: 450 MILLIGRAM, SINGLE
     Route: 042
     Dates: start: 20230313, end: 20230319
  32. CALCIUM\VITAMIN D [Concomitant]
     Active Substance: CALCIUM\VITAMIN D
     Indication: Supplementation therapy
     Dosage: 1 DOSAGE FORM, QD
     Route: 048
     Dates: start: 20230313, end: 20230319
  33. CHLORHEXIDINE [Concomitant]
     Active Substance: CHLORHEXIDINE
     Indication: Dental disorder prophylaxis
     Dosage: 15 MILLILITER, BID
     Route: 048
     Dates: start: 20230313, end: 20230319
  34. CLARITIN [Concomitant]
     Active Substance: LORATADINE
     Indication: Hypersensitivity
     Dosage: 10 MILLIGRAM, QD
     Route: 048
     Dates: start: 20230313, end: 20230319
  35. DEXMEDETOMIDINE [Concomitant]
     Active Substance: DEXMEDETOMIDINE
     Indication: Sedation
     Dosage: 400 MICROGRAM
     Route: 042
     Dates: start: 20230313, end: 20230319
  36. SODIUM BICARBONATE BRAUN 8,4% [Concomitant]
     Indication: Hypoglycaemia
     Dosage: 150 MILLIEQUIVALENT, SINGLE
     Route: 042
     Dates: start: 20230313, end: 20230319
  37. DEXTROSE [Concomitant]
     Active Substance: DEXTROSE\DEXTROSE MONOHYDRATE
     Indication: Hypoglycaemia
     Dosage: 12.5MG IN 25ML EVERY 15 MINUTES AS NEEDED
     Route: 042
     Dates: start: 20230313, end: 20230319
  38. DOCUSATE [Concomitant]
     Active Substance: DOCUSATE
     Indication: Constipation
     Dosage: 100MG IN 10ML, BID
     Route: 065
     Dates: start: 20230313, end: 20230319
  39. DULCOLAX NOS [Concomitant]
     Active Substance: BISACODYL OR DOCUSATE SODIUM
     Indication: Constipation
     Dosage: 1 DOSAGE FORM
     Route: 054
     Dates: start: 20230313, end: 20230319
  40. FENTANYL [Concomitant]
     Active Substance: FENTANYL
     Indication: Pain
     Dosage: 25 MICROGRAM IN 0/5ML, PRN
     Route: 042
     Dates: start: 20230313, end: 20230319
  41. FENTANYL [Concomitant]
     Active Substance: FENTANYL
     Dosage: 50 MICROGRAM IN 1 ML, EVERY 15 MINUTES PRN
     Route: 042
     Dates: start: 20230313, end: 20230319
  42. HEPARIN [Concomitant]
     Active Substance: HEPARIN SODIUM
     Indication: Blood disorder prophylaxis
     Dosage: 1000 UNITS
     Route: 058
     Dates: start: 20230313, end: 20230319
  43. HYDRALAZINE [Concomitant]
     Active Substance: HYDRALAZINE HYDROCHLORIDE
     Indication: Hypertension
     Dosage: 100 MILLIGRAM, EVERY SIX HOURS PRN
     Route: 042
     Dates: start: 20230313, end: 20230319
  44. LACTOBACILLUS RHAMNOSUS [Concomitant]
     Active Substance: LACTOBACILLUS RHAMNOSUS
     Indication: Prophylaxis
     Dosage: 80 MILLIGRAM, BID
     Route: 048
     Dates: start: 20230313, end: 20230319
  45. LIDOCAINE [Concomitant]
     Active Substance: LIDOCAINE
     Indication: Pain prophylaxis
     Dosage: UNK
     Route: 023
     Dates: start: 20230313, end: 20230319
  46. MELATONIN [Concomitant]
     Active Substance: MELATONIN
     Indication: Insomnia
     Dosage: 5 MILLIGRAM, AT NIGHT
     Route: 048
     Dates: start: 20230313, end: 20230319
  47. MEROPENEM [Concomitant]
     Active Substance: MEROPENEM
     Indication: Product used for unknown indication
     Dosage: UNK
     Route: 065
     Dates: start: 20230313, end: 20230319
  48. METHYLPREDNISOLONE [Concomitant]
     Active Substance: METHYLPREDNISOLONE
     Indication: Pulmonary alveolar haemorrhage
     Dosage: 60 MILLIGRAM, TID
     Route: 042
     Dates: start: 20230313, end: 20230319
  49. METOPROLOL TARTRATE [Concomitant]
     Active Substance: METOPROLOL TARTRATE
     Indication: Hypertension
     Dosage: 5MG IN 5ML, PRN
     Route: 042
     Dates: start: 20230313, end: 20230319
  50. NOREPINEPHRINE [Concomitant]
     Active Substance: NOREPINEPHRINE
     Indication: Hypotension
     Dosage: 8 MG IN DSW
     Route: 065
     Dates: start: 20230313, end: 20230319
  51. SODIUM CHLORIDE [Concomitant]
     Active Substance: SODIUM CHLORIDE
     Indication: Hypotension
     Dosage: 1000 MILLILITER, SINGLE
     Route: 042
     Dates: start: 20230313, end: 20230319
  52. ONDANSETRON [Concomitant]
     Active Substance: ONDANSETRON
     Indication: Nausea
     Dosage: 4 MILLIGRAM, PRN (EVERY 6 HOURS AS NEEDED)
     Route: 048
     Dates: start: 20230313, end: 20230319
  53. ONDANSETRON [Concomitant]
     Active Substance: ONDANSETRON
     Indication: Vomiting
  54. PANTOPRAZOLE [Concomitant]
     Active Substance: PANTOPRAZOLE
     Indication: Gastrooesophageal reflux prophylaxis
     Dosage: 40 MILLIGRAM, QD
     Route: 042
     Dates: start: 20230313, end: 20230319
  55. PANTOPRAZOLE [Concomitant]
     Active Substance: PANTOPRAZOLE
     Indication: Prophylaxis against gastrointestinal ulcer
  56. PROPOFOL [Concomitant]
     Active Substance: PROPOFOL
     Indication: Hypotension
     Dosage: 5MCK/KG/MIN IN STERILE WATER
     Route: 042
     Dates: start: 20230313, end: 20230319
  57. VANCOMYCIN [Concomitant]
     Active Substance: VANCOMYCIN
     Indication: Infection
     Dosage: 1250MG IN 250ML, QD
     Route: 042
     Dates: start: 20230313, end: 20230319
  58. VANCOMYCIN [Concomitant]
     Active Substance: VANCOMYCIN
     Indication: Sepsis
     Dosage: UNK
     Route: 065
     Dates: start: 20230311
  59. VASOPRESSIN [Concomitant]
     Active Substance: VASOPRESSIN
     Indication: Hypotension
     Dosage: 10 UNITS IN 50ML SODIUM CHLORIDE
     Route: 065
     Dates: start: 20230313, end: 20230319
  60. VERSED [Concomitant]
     Active Substance: MIDAZOLAM HYDROCHLORIDE
     Indication: Pain
     Dosage: 5MG/5 ML VIAL, 2MG=2ML, EVERY HOURS
     Route: 042
     Dates: start: 20230313, end: 20230319
  61. BACTRIM [Concomitant]
     Active Substance: SULFAMETHOXAZOLE\TRIMETHOPRIM
     Indication: Pneumocystis jirovecii infection
     Dosage: UNK
     Route: 065
  62. LEVOPHED [Concomitant]
     Active Substance: NOREPINEPHRINE BITARTRATE
     Indication: Hypotension
     Dosage: UNK
     Route: 065
  63. PHENYLEPHRINE [Concomitant]
     Active Substance: PHENYLEPHRINE HYDROCHLORIDE
     Indication: Hypotension
     Dosage: 100 MICROGRAM PER MIN IN SODIUM CHLORIDE
     Route: 065
     Dates: start: 20230313, end: 20230319
  64. DEXAMETHASONE [Concomitant]
     Active Substance: DEXAMETHASONE
     Indication: Premedication
     Dosage: 10 MILLIGRAM
     Route: 042
  65. DIPHENHYDRAMINE [Concomitant]
     Active Substance: DIPHENHYDRAMINE
     Indication: Premedication
     Dosage: 50 MILLIGRAM
     Route: 048
  66. FAMOTIDINE [Concomitant]
     Active Substance: FAMOTIDINE
     Indication: Premedication
     Dosage: 20 MILLIGRAM
     Route: 042
  67. ACETAMINOPHEN [Concomitant]
     Active Substance: ACETAMINOPHEN
     Indication: Premedication
     Dosage: 500 MILLIGRAM
     Route: 048

REACTIONS (10)
  - Respiratory failure [Fatal]
  - Pneumonia [Not Recovered/Not Resolved]
  - Sepsis [Not Recovered/Not Resolved]
  - Cardiac failure chronic [Not Recovered/Not Resolved]
  - Hepatic lesion [Not Recovered/Not Resolved]
  - Deep vein thrombosis [Unknown]
  - B-cell lymphoma [Unknown]
  - Therapy interrupted [Unknown]
  - Thrombocytopenia [Recovered/Resolved]
  - Epistaxis [Recovered/Resolved]

NARRATIVE: CASE EVENT DATE: 20230309
